FAERS Safety Report 9275661 (Version 2)
Quarter: 2013Q3

REPORT INFORMATION
  Report Type: Report from Study
  Country: JP (occurrence: JP)
  Receive Date: 20130507
  Receipt Date: 20130816
  Transmission Date: 20140515
  Serious: Yes (Hospitalization)
  Sender: FDA-Public Use
  Company Number: JP-ELI_LILLY_AND_COMPANY-JP201303001640

PATIENT
  Sex: Female

DRUGS (1)
  1. TERIPARATIDE [Suspect]
     Route: 058

REACTIONS (6)
  - Fall [Recovered/Resolved]
  - Femur fracture [Unknown]
  - Fall [Recovered/Resolved]
  - Joint dislocation [Unknown]
  - Pruritus [Unknown]
  - Eczema [Unknown]
